FAERS Safety Report 5830054-7 (Version None)
Quarter: 2008Q3

REPORT INFORMATION
  Report Type: 
  Country: None (occurrence: None)
  Receive Date: 20080801
  Receipt Date: 20080722
  Transmission Date: 20090109
  Serious: Yes (Hospitalization)
  Sender: FDA-Public Use
  Company Number: GR-AVENTIS-200817176GDDC

PATIENT
  Age: 49 Year
  Sex: Female

DRUGS (4)
  1. ARAVA [Suspect]
     Dosage: DOSE: UNK
     Route: 048
  2. DEPAKENE [Suspect]
     Route: 048
  3. KEPPRA [Suspect]
     Dosage: DOSE: UNK
     Route: 048
  4. BIOFENAC                           /01140001/ [Suspect]
     Dosage: DOSE: UNK
     Route: 048

REACTIONS (1)
  - JAUNDICE [None]
